FAERS Safety Report 9471363 (Version 4)
Quarter: 2013Q4

REPORT INFORMATION
  Report Type: Spontaneous
  Country: JP (occurrence: JP)
  Receive Date: 20130822
  Receipt Date: 20131211
  Transmission Date: 20140711
  Serious: Yes (Hospitalization)
  Sender: FDA-Public Use
  Company Number: JP-UCBSA-094474

PATIENT
  Age: 19 Year
  Sex: Male
  Weight: 71 kg

DRUGS (16)
  1. E KEPPRA [Suspect]
     Indication: EPILEPSY
     Dosage: STRENGTH: 500 MG
     Route: 048
     Dates: start: 20130426, end: 20130722
  2. E KEPPRA [Interacting]
     Indication: EPILEPSY
     Route: 048
     Dates: start: 20130729
  3. METHOTREXATE [Interacting]
     Indication: CHRONIC MYELOID LEUKAEMIA
     Dosage: 1820 MG
     Route: 042
     Dates: start: 20130718, end: 20130718
  4. SELBEX [Concomitant]
     Dosage: 150 MG
     Route: 048
     Dates: start: 20130517
  5. ROZEREM [Concomitant]
     Dosage: 8 MG
     Route: 048
     Dates: start: 20130517, end: 20130724
  6. MYSLEE [Concomitant]
     Dosage: 5 MG
     Dates: start: 20130511
  7. MAGLAX [Concomitant]
     Dosage: 990 MG
     Route: 048
     Dates: start: 20130627, end: 20130722
  8. SPRYCEL [Concomitant]
     Dosage: 100 MG
     Route: 048
     Dates: start: 20130426, end: 20130720
  9. BIOFERMIN [Concomitant]
     Dosage: 3DF
     Route: 048
     Dates: start: 20130719
  10. CRAVIT [Concomitant]
     Dosage: 500 MG
     Route: 048
     Dates: start: 20130501, end: 20130720
  11. CYLOCIDE [Concomitant]
     Dosage: 7300 MG
     Route: 042
     Dates: start: 20130719, end: 20130719
  12. PRIDOL [Concomitant]
     Dosage: 80 MG
     Dates: start: 20130718, end: 20130719
  13. CERCINE [Concomitant]
  14. PHENOBARBITAL [Concomitant]
     Dates: end: 2013
  15. PHENOBARBITAL [Concomitant]
     Dates: start: 20130718, end: 20130720
  16. ALOXI [Concomitant]

REACTIONS (2)
  - Renal disorder [Recovered/Resolved]
  - Drug interaction [Unknown]
